FAERS Safety Report 7624168-9 (Version None)
Quarter: 2011Q3

REPORT INFORMATION
  Report Type: 
  Country: None (occurrence: None)
  Receive Date: 20110720
  Receipt Date: 20110720
  Transmission Date: 20111222
  Serious: Yes (Hospitalization, Other)
  Sender: FDA-Public Use
  Company Number: None

PATIENT
  Sex: Male
  Weight: 56.5 kg

DRUGS (1)
  1. ZOLOFT [Suspect]
     Indication: ANTIDEPRESSANT THERAPY
     Dosage: 1 TABLET
     Route: 048
     Dates: start: 20030304, end: 20030309

REACTIONS (13)
  - ANXIETY [None]
  - SOMNOLENCE [None]
  - AGGRESSION [None]
  - TREMOR [None]
  - CONVULSION [None]
  - MANIA [None]
  - MUSCLE SPASMS [None]
  - AKATHISIA [None]
  - IRRITABILITY [None]
  - HYPERHIDROSIS [None]
  - AGITATION [None]
  - CONFUSIONAL STATE [None]
  - SPINAL CORD DISORDER [None]
